FAERS Safety Report 14168315 (Version 2)
Quarter: 2018Q2

REPORT INFORMATION
  Report Type: Spontaneous
  Country: US (occurrence: US)
  Receive Date: 20171107
  Receipt Date: 20180515
  Transmission Date: 20180711
  Serious: No
  Sender: FDA-Public Use
  Company Number: US-SA-2017SA134347

PATIENT
  Age: 75 Year
  Sex: Male

DRUGS (5)
  1. SOLOSTAR [Suspect]
     Active Substance: DEVICE
  2. LANTUS [Concomitant]
     Active Substance: INSULIN GLARGINE
     Dosage: FORM: VIAL
     Route: 065
  3. SOLOSTAR [Concomitant]
     Active Substance: DEVICE
  4. TOUJEO [Suspect]
     Active Substance: INSULIN GLARGINE
     Route: 051
  5. LANTUS SOLOSTAR [Concomitant]
     Active Substance: INSULIN GLARGINE
     Route: 065

REACTIONS (6)
  - Unevaluable event [Unknown]
  - Decreased appetite [Unknown]
  - Weight increased [Unknown]
  - Speech disorder [Unknown]
  - Limb discomfort [Unknown]
  - Cough [Unknown]
